FAERS Safety Report 9928305 (Version 1)
Quarter: 2014Q1

REPORT INFORMATION
  Report Type: Spontaneous
  Country: PL (occurrence: PL)
  Receive Date: 20140227
  Receipt Date: 20140227
  Transmission Date: 20141002
  Serious: Yes (Other)
  Sender: FDA-Public Use
  Company Number: PHHY2014PL019472

PATIENT
  Age: 55 Year
  Sex: Female
  Weight: 83 kg

DRUGS (6)
  1. METHOTREXATE [Suspect]
     Indication: PSORIASIS
     Dosage: 15 MG, QW
     Route: 048
     Dates: start: 20131211, end: 20131218
  2. VIVACE [Concomitant]
     Dosage: 5 MG, QD
     Route: 048
  3. EUTHYROX [Concomitant]
     Dosage: 100 OT, UNK
     Route: 048
  4. EUTHYROX [Concomitant]
     Dosage: 75 OT, UNK
     Route: 048
  5. APO-NAPRO NA [Concomitant]
     Dosage: 500 MG, QD
     Route: 048
  6. PANTOPRAZOLE [Concomitant]
     Dosage: 20 MG, QD
     Route: 048

REACTIONS (3)
  - Pruritus [Recovered/Resolved]
  - Erythema [Recovered/Resolved]
  - Face oedema [Recovered/Resolved]
